FAERS Safety Report 13857492 (Version 7)
Quarter: 2019Q1

REPORT INFORMATION
  Report Type: Report from Study
  Country: CN (occurrence: CN)
  Receive Date: 20170810
  Receipt Date: 20190117
  Transmission Date: 20190417
  Serious: Yes (Hospitalization)
  Sender: FDA-Public Use
  Company Number: PHHY2017CN116392

PATIENT
  Age: 44 Year
  Sex: Female
  Weight: 66 kg

DRUGS (22)
  1. BASILIXIMAB [Suspect]
     Active Substance: BASILIXIMAB
     Indication: PRODUCT USED FOR UNKNOWN INDICATION
     Dosage: 20 MG, QD
     Route: 065
     Dates: start: 20170410, end: 20170410
  2. METOPROLOL TARTRATE. [Concomitant]
     Active Substance: METOPROLOL TARTRATE
     Indication: HYPERTENSION
     Dosage: UNK UNK, BID
     Route: 048
     Dates: start: 20170414
  3. MYFORTIC [Suspect]
     Active Substance: MYCOPHENOLATE SODIUM
     Indication: RENAL TRANSPLANT
     Dosage: 1080 MG, QD
     Route: 065
     Dates: start: 20170409, end: 20170409
  4. BASILIXIMAB [Suspect]
     Active Substance: BASILIXIMAB
     Dosage: 20 MG, QD
     Route: 065
     Dates: start: 20170414, end: 20170414
  5. TORSEMIDE. [Concomitant]
     Active Substance: TORSEMIDE
     Indication: DIURETIC THERAPY
     Dosage: UNK UNK, QD
     Route: 048
     Dates: start: 20170417, end: 20170424
  6. CEFUROXIME AXETIL. [Concomitant]
     Active Substance: CEFUROXIME AXETIL
     Indication: INFECTION PROPHYLAXIS
     Dosage: UNK UNK, BID
     Route: 048
     Dates: start: 20170421
  7. MYFORTIC [Suspect]
     Active Substance: MYCOPHENOLATE SODIUM
     Dosage: 1080 MG, QD
     Route: 065
     Dates: start: 20170415
  8. EUCALYPTOL LIMONENE PINENE [Concomitant]
     Indication: BRONCHIAL DISORDER
     Dosage: 1 DF, BID
     Route: 048
     Dates: start: 20180119, end: 20180126
  9. PIPERACILLIN AND TAZOBACTAM [Concomitant]
     Active Substance: PIPERACILLIN SODIUM\TAZOBACTAM SODIUM
     Dosage: 4.5 G, TID
     Route: 065
     Dates: start: 20170625, end: 20170629
  10. NICARDIPINE HYDROCHLORIDE. [Concomitant]
     Active Substance: NICARDIPINE HYDROCHLORIDE
     Indication: HYPERTENSION
     Dosage: UNK UNK, BID
     Route: 048
     Dates: start: 20170412
  11. POTASSIUM CHLORIDE. [Concomitant]
     Active Substance: POTASSIUM CHLORIDE
     Indication: PRODUCT USED FOR UNKNOWN INDICATION
     Dosage: UNK UNK, BID
     Route: 048
     Dates: start: 20170419, end: 20170424
  12. MYFORTIC [Suspect]
     Active Substance: MYCOPHENOLATE SODIUM
     Dosage: 2160 MG, QD
     Route: 065
     Dates: start: 20170411, end: 20170414
  13. MYFORTIC [Suspect]
     Active Substance: MYCOPHENOLATE SODIUM
     Dosage: 1080 MG, UNK
     Route: 048
     Dates: start: 20170506
  14. PIPERACILLIN AND TAZOBACTAM [Concomitant]
     Active Substance: PIPERACILLIN SODIUM\TAZOBACTAM SODIUM
     Indication: INFECTION PROPHYLAXIS
     Dosage: 4.5 G, BID
     Route: 065
     Dates: start: 20170625
  15. CEFOPERAZONE + SULBACTAM [Concomitant]
     Active Substance: CEFOPERAZONE SODIUM\SULBACTAM
     Indication: INFECTION PROPHYLAXIS
     Dosage: 3 G, BID
     Route: 042
     Dates: start: 20180119, end: 20180122
  16. MYFORTIC [Suspect]
     Active Substance: MYCOPHENOLATE SODIUM
     Dosage: 2160 MG, QD
     Route: 065
     Dates: start: 20170410, end: 20170410
  17. MYFORTIC [Suspect]
     Active Substance: MYCOPHENOLATE SODIUM
     Dosage: 1440 MG, QD
     Route: 065
     Dates: start: 20170503
  18. MYFORTIC [Suspect]
     Active Substance: MYCOPHENOLATE SODIUM
     Dosage: 1080 MG, QD
     Route: 065
     Dates: start: 20170608, end: 20171227
  19. MYFORTIC [Suspect]
     Active Substance: MYCOPHENOLATE SODIUM
     Dosage: 1080 MG, QD
     Route: 065
     Dates: start: 20171228, end: 20180320
  20. MYFORTIC [Suspect]
     Active Substance: MYCOPHENOLATE SODIUM
     Dosage: 720 MG, QD
     Route: 065
     Dates: start: 20180321
  21. AMLODIPINE BESYLATE. [Concomitant]
     Active Substance: AMLODIPINE BESYLATE
     Indication: HYPERTENSION
     Dosage: 5 MG, BID
     Route: 048
     Dates: start: 20170411, end: 20180413
  22. FELODIPINE. [Concomitant]
     Active Substance: FELODIPINE
     Indication: HYPERTENSION
     Dosage: UNK UNK, QD
     Route: 048
     Dates: start: 20170412

REACTIONS (10)
  - Cervical dysplasia [Recovered/Resolved]
  - Uterine polyp [Recovered/Resolved]
  - Insomnia [Recovering/Resolving]
  - Upper respiratory tract infection [Recovered/Resolved]
  - Bronchitis [Recovering/Resolving]
  - Endometrial hyperplasia [Recovered/Resolved]
  - Hypercholesterolaemia [Not Recovered/Not Resolved]
  - Pyrexia [Recovered/Resolved]
  - Endometrial hyperplasia [Recovered/Resolved]
  - Urinary tract infection [Recovered/Resolved]

NARRATIVE: CASE EVENT DATE: 20170524
